FAERS Safety Report 14728282 (Version 1)
Quarter: 2018Q2

REPORT INFORMATION
  Report Type: Spontaneous
  Country: US (occurrence: US)
  Receive Date: 20180402
  Receipt Date: 20180402
  Transmission Date: 20180711
  Serious: No
  Sender: FDA-Public Use
  Company Number: None

PATIENT
  Age: 30 Month
  Sex: Female

DRUGS (1)
  1. NPLATE [Suspect]
     Active Substance: ROMIPLOSTIM
     Indication: RHEUMATOID ARTHRITIS
     Route: 058
     Dates: start: 20180312

REACTIONS (3)
  - Insomnia [None]
  - Abdominal pain [None]
  - Dyspepsia [None]

NARRATIVE: CASE EVENT DATE: 20180330
